FAERS Safety Report 8621887-2 (Version None)
Quarter: 2012Q3

REPORT INFORMATION
  Report Type: 
  Country: None (occurrence: None)
  Receive Date: 20120822
  Receipt Date: 20120822
  Transmission Date: 20120928
  Serious: No
  Sender: FDA-Public Use
  Company Number: None

PATIENT
  Sex: Male

DRUGS (1)
  1. ERIVEDGE [Suspect]
     Indication: BASAL CELL CARCINOMA
     Dosage: 150 MG, DAILY, PO
     Route: 048
     Dates: start: 20120301, end: 20120801

REACTIONS (1)
  - MUSCLE SPASMS [None]
